FAERS Safety Report 5990909-X (Version None)
Quarter: 2008Q4

REPORT INFORMATION
  Report Type: 
  Country: None (occurrence: None)
  Receive Date: 20081211
  Receipt Date: 20081208
  Transmission Date: 20090506
  Serious: Yes (Hospitalization)
  Sender: FDA-Public Use
  Company Number: FR-BRISTOL-MYERS SQUIBB COMPANY-14436158

PATIENT
  Age: 77 Year
  Sex: Male

DRUGS (8)
  1. IRBESARTAN [Suspect]
     Indication: HYPERTENSION
  2. HEMI-DAONIL [Suspect]
     Indication: TYPE 2 DIABETES MELLITUS
  3. FUROSEMIDE [Concomitant]
  4. PREVISCAN [Concomitant]
  5. CORDARONE [Concomitant]
  6. FENOFIBRATE [Concomitant]
  7. ALLOPURINOL [Concomitant]
  8. ACETAMINOPHEN [Concomitant]

REACTIONS (2)
  - HYPOGLYCAEMIA [None]
  - RENAL FAILURE ACUTE [None]
